FAERS Safety Report 4305622-4 (Version None)
Quarter: 2004Q1

REPORT INFORMATION
  Report Type: 
  Country: None (occurrence: None)
  Receive Date: 20040226
  Receipt Date: 20031217
  Transmission Date: 20041129
  Serious: No
  Sender: FDA-Public Use
  Company Number: US-BRISTOL-MYERS SQUIBB COMPANY-12460085

PATIENT
  Age: 10 Year
  Sex: Male

DRUGS (7)
  1. ABILIFY [Suspect]
     Indication: AGGRESSION
     Route: 048
     Dates: start: 20031210, end: 20031217
  2. ABILIFY [Suspect]
     Indication: IMPULSIVE BEHAVIOUR
     Route: 048
     Dates: start: 20031210, end: 20031217
  3. ABILIFY [Suspect]
     Indication: INTERMITTENT EXPLOSIVE DISORDER
     Route: 048
     Dates: start: 20031210, end: 20031217
  4. ABILIFY [Suspect]
     Indication: ANGER
     Route: 048
     Dates: start: 20031210, end: 20031217
  5. PROZAC [Concomitant]
  6. CLONIDINE [Concomitant]
  7. CONCERTA [Concomitant]

REACTIONS (7)
  - ABDOMINAL PAIN UPPER [None]
  - COGWHEEL RIGIDITY [None]
  - DYSTONIA [None]
  - FALL [None]
  - GAIT DISTURBANCE [None]
  - HEADACHE [None]
  - TREMOR [None]
